FAERS Safety Report 8092352-9 (Version None)
Quarter: 2012Q1

REPORT INFORMATION
  Report Type: 
  Country: None (occurrence: None)
  Receive Date: 20120128
  Receipt Date: 20110823
  Transmission Date: 20120608
  Serious: No
  Sender: FDA-Public Use
  Company Number: US-ABBOTT-11P-163-0849086-00

PATIENT
  Sex: Female

DRUGS (7)
  1. CALCIUM [Concomitant]
     Indication: SUPPLEMENTATION THERAPY
  2. FISH OIL [Concomitant]
     Indication: SUPPLEMENTATION THERAPY
  3. METHOTREXATE [Concomitant]
     Indication: PSORIATIC ARTHROPATHY
  4. HUMIRA [Suspect]
     Indication: PSORIATIC ARTHROPATHY
     Dates: start: 20110822
  5. FOLIC ACID [Concomitant]
     Indication: VITAMIN SUPPLEMENTATION
  6. LOTENSON [Concomitant]
     Indication: HYPERTENSION
  7. MULTIPLE VITAMINS [Concomitant]
     Indication: VITAMIN SUPPLEMENTATION

REACTIONS (1)
  - MUSCLE SPASMS [None]
